FAERS Safety Report 17052303 (Version 3)
Quarter: 2019Q4

REPORT INFORMATION
  Report Type: Spontaneous
  Country: US (occurrence: US)
  Receive Date: 20191120
  Receipt Date: 20191226
  Transmission Date: 20200122
  Serious: No
  Sender: FDA-Public Use
  Company Number: US-JNJFOC-20191120992

PATIENT
  Sex: Male
  Weight: 70.37 kg

DRUGS (1)
  1. MENS ROGAINE EXTRA STRENGTH [Suspect]
     Active Substance: MINOXIDIL
     Indication: ALOPECIA
     Dosage: 1/2 CAPFUL, THE PATIENT LAST USED THE PRODUCT ON 10-NOV-2019.
     Route: 061

REACTIONS (3)
  - Chest pain [Recovered/Resolved]
  - Acne [Recovered/Resolved]
  - Alopecia [Not Recovered/Not Resolved]
